FAERS Safety Report 9775624 (Version 1)
Quarter: 2013Q4

REPORT INFORMATION
  Report Type: Spontaneous
  Country: DE (occurrence: DE)
  Receive Date: 20131220
  Receipt Date: 20131220
  Transmission Date: 20140711
  Serious: Yes (Other)
  Sender: FDA-Public Use
  Company Number: DE-JNJFOC-20131205678

PATIENT
  Sex: 0

DRUGS (3)
  1. DUROGESIC SMAT [Suspect]
     Indication: PAIN MANAGEMENT
     Route: 062
  2. HYDROMORPHONE [Suspect]
     Indication: PAIN MANAGEMENT
     Route: 058
  3. HYDROMORPHONE [Suspect]
     Indication: PALLIATIVE CARE
     Route: 058

REACTIONS (2)
  - Respiratory depression [Recovered/Resolved]
  - Depressed level of consciousness [Unknown]
